FAERS Safety Report 5891866-7 (Version None)
Quarter: 2008Q3

REPORT INFORMATION
  Report Type: 
  Country: None (occurrence: None)
  Receive Date: 20080922
  Receipt Date: 20080915
  Transmission Date: 20090109
  Serious: Yes (Hospitalization)
  Sender: FDA-Public Use
  Company Number: BR-SANOFI-SYNTHELABO-A01200811190

PATIENT
  Sex: Female
  Weight: 99 kg

DRUGS (9)
  1. INSULIN [Concomitant]
     Indication: DIABETES MELLITUS
     Dosage: FOUR APPLICATIONS
     Route: 065
     Dates: start: 19970101
  2. LEXOTAN [Suspect]
     Indication: DRUG USE FOR UNKNOWN INDICATION
     Dosage: UNK
     Route: 065
     Dates: end: 20080901
  3. ASPIRIN [Suspect]
     Indication: DRUG USE FOR UNKNOWN INDICATION
     Route: 048
     Dates: start: 20050101, end: 20080825
  4. METFORMIN HCL [Suspect]
     Indication: DIABETES MELLITUS
     Dosage: 1.5 UNIT
     Route: 048
     Dates: start: 19880101, end: 20080901
  5. STUGERON [Suspect]
     Indication: LABYRINTHITIS
     Dosage: UNK
     Route: 048
     Dates: end: 20080801
  6. STILNOX [Suspect]
     Indication: DRUG USE FOR UNKNOWN INDICATION
     Dosage: UNK
     Route: 065
  7. ACOMPLIA [Suspect]
     Indication: CENTRAL OBESITY
     Route: 048
     Dates: start: 20080816, end: 20080901
  8. DIOVAN [Suspect]
     Indication: DRUG USE FOR UNKNOWN INDICATION
     Dosage: UNK
     Route: 065
     Dates: end: 20080901
  9. LIPITOR [Suspect]
     Indication: DRUG USE FOR UNKNOWN INDICATION
     Dosage: UNK
     Route: 065
     Dates: end: 20080901

REACTIONS (10)
  - ABDOMINAL PAIN UPPER [None]
  - ALANINE AMINOTRANSFERASE INCREASED [None]
  - ASPARTATE AMINOTRANSFERASE INCREASED [None]
  - BLOOD BILIRUBIN INCREASED [None]
  - CHROMATURIA [None]
  - GAMMA-GLUTAMYLTRANSFERASE INCREASED [None]
  - JAUNDICE [None]
  - PYREXIA [None]
  - SOMNOLENCE [None]
  - VOMITING [None]
